FAERS Safety Report 9169124 (Version 2)
Quarter: 2013Q2

REPORT INFORMATION
  Report Type: Spontaneous
  Country: FR (occurrence: FR)
  Receive Date: 20130318
  Receipt Date: 20130429
  Transmission Date: 20140414
  Serious: Yes (Other)
  Sender: FDA-Public Use
  Company Number: FR-VIIV HEALTHCARE LIMITED-B0873365A

PATIENT
  Age: 34 Year
  Sex: Female

DRUGS (5)
  1. KIVEXA [Suspect]
     Indication: HIV INFECTION
     Dosage: 1TAB PER DAY
     Route: 048
     Dates: start: 20130116, end: 20130126
  2. SUSTIVA [Suspect]
     Indication: HIV INFECTION
     Route: 048
     Dates: start: 20130116
  3. ATRIPLA [Concomitant]
     Indication: HIV INFECTION
     Route: 065
     Dates: end: 20130116
  4. MULTIVITAMIN + CALCIUM [Concomitant]
  5. ACTONEL [Concomitant]
     Route: 065

REACTIONS (6)
  - Paraesthesia [Recovered/Resolved]
  - Malaise [Recovered/Resolved]
  - Palpitations [Recovered/Resolved]
  - Gingival bleeding [Recovered/Resolved]
  - Asthenia [Recovered/Resolved]
  - Drug hypersensitivity [Recovered/Resolved]
